FAERS Safety Report 4678565-4 (Version None)
Quarter: 2005Q2

REPORT INFORMATION
  Report Type: 
  Country: None (occurrence: None)
  Receive Date: 20050527
  Receipt Date: 20050513
  Transmission Date: 20051028
  Serious: Yes (Other)
  Sender: FDA-Public Use
  Company Number: 430010M05DEU

PATIENT
  Age: 40 Year
  Sex: Female

DRUGS (1)
  1. RALENOVA (MITOXANTRONE HYDROCHLORIDE) [Suspect]
     Dosage: 1 CYCLE,

REACTIONS (1)
  - PERICARDIAL EFFUSION [None]
